FAERS Safety Report 9377231 (Version 1)
Quarter: 2013Q3

REPORT INFORMATION
  Report Type: Spontaneous
  Country: HU (occurrence: HU)
  Receive Date: 20130701
  Receipt Date: 20130701
  Transmission Date: 20140515
  Serious: Yes (Other)
  Sender: FDA-Public Use
  Company Number: HU-ROCHE-1242824

PATIENT
  Age: 81 Year
  Sex: Male

DRUGS (1)
  1. INTERFERON ALFA-2A [Suspect]
     Indication: HAIRY CELL LEUKAEMIA
     Route: 065

REACTIONS (1)
  - Pancytopenia [Recovered/Resolved]
